FAERS Safety Report 5715871-6 (Version None)
Quarter: 2008Q2

REPORT INFORMATION
  Report Type: 
  Country: None (occurrence: None)
  Receive Date: 20080424
  Receipt Date: 20080416
  Transmission Date: 20081010
  Serious: Yes (Other)
  Sender: FDA-Public Use
  Company Number: US-ROCHE-512843

PATIENT
  Sex: Female
  Weight: 65.8 kg

DRUGS (23)
  1. ACCUTANE [Suspect]
     Dosage: REPORTED AS 40MG OD
     Route: 048
     Dates: start: 20030509
  2. ACCUTANE [Suspect]
     Dosage: REPORTED AS 40MG BID ALTERNATING WITH 40 MG OD
     Route: 048
     Dates: start: 20030609, end: 20031019
  3. ORTHO TRI-CYCLEN [Concomitant]
  4. ORTHO TRI-CYCLEN [Concomitant]
  5. CLINDAMYCIN LOTION [Concomitant]
     Dates: start: 20020702
  6. SULFAMETHOXAZOLE AND TRIMETHOPRIM [Concomitant]
     Indication: ACNE
     Dates: start: 20021018
  7. SULFAMETHOXAZOLE AND TRIMETHOPRIM [Concomitant]
     Dates: start: 20021107
  8. SULFAMETHOXAZOLE AND TRIMETHOPRIM [Concomitant]
     Dates: start: 20030425
  9. SULFAMETHOXAZOLE AND TRIMETHOPRIM [Concomitant]
     Dates: start: 20021018
  10. SULFAMETHOXAZOLE AND TRIMETHOPRIM [Concomitant]
     Dates: start: 20021107
  11. SULFAMETHOXAZOLE AND TRIMETHOPRIM [Concomitant]
     Dates: start: 20030425
  12. CLEOCIN T [Concomitant]
     Indication: ACNE
     Dates: start: 20021018
  13. CLEOCIN T [Concomitant]
     Dates: start: 20030425
  14. PLEXION [Concomitant]
     Indication: ACNE
     Dates: start: 20021018
  15. PLEXION [Concomitant]
     Dates: start: 20021018
  16. NEUTROGENA [Concomitant]
     Dates: start: 20030425
  17. MINOCYCLINE HCL [Concomitant]
     Indication: ACNE
     Dates: start: 20020222
  18. METROCREAM [Concomitant]
     Indication: ACNE
     Dates: start: 20020222
  19. DOXYCYCLINE [Concomitant]
     Indication: ACNE
     Dates: start: 20020426
  20. CLINDAMYCIN TOPICAL GEL [Concomitant]
     Indication: ACNE
     Dates: start: 20020426
  21. PREVACID [Concomitant]
     Dates: start: 20020426
  22. ERYTHROMYCIN [Concomitant]
  23. RETIN-A [Concomitant]

REACTIONS (13)
  - ADENOMA BENIGN [None]
  - COLITIS [None]
  - COLITIS ULCERATIVE [None]
  - CROHN'S DISEASE [None]
  - DEPRESSION [None]
  - DRY SKIN [None]
  - GASTROINTESTINAL DISORDER [None]
  - INFLAMMATORY BOWEL DISEASE [None]
  - IRRITABLE BOWEL SYNDROME [None]
  - MOUTH CYST [None]
  - OVARIAN CYST [None]
  - PAIN [None]
  - PROCTITIS [None]
